FAERS Safety Report 6545393-4 (Version None)
Quarter: 2010Q1

REPORT INFORMATION
  Report Type: 
  Country: None (occurrence: None)
  Receive Date: 20100121
  Receipt Date: 20100118
  Transmission Date: 20100710
  Serious: Yes (Other)
  Sender: FDA-Public Use
  Company Number: US-RB-000982-10

PATIENT
  Age: 58 Year
  Sex: Female

DRUGS (1)
  1. SUBOXONE [Suspect]
     Dosage: TOOK VARIOUS DOSES RANGING FROM 4 MG
     Route: 060
     Dates: start: 20091231, end: 20100114

REACTIONS (11)
  - ABDOMINAL PAIN UPPER [None]
  - ANXIETY [None]
  - CHEST DISCOMFORT [None]
  - DRUG WITHDRAWAL SYNDROME [None]
  - FALL [None]
  - FATIGUE [None]
  - FLUSHING [None]
  - HEADACHE [None]
  - LOSS OF CONSCIOUSNESS [None]
  - NAUSEA [None]
  - RESTLESS LEGS SYNDROME [None]
